FAERS Safety Report 19944547 (Version 1)
Quarter: 2021Q4

REPORT INFORMATION
  Report Type: Spontaneous
  Country: ES (occurrence: ES)
  Receive Date: 20211012
  Receipt Date: 20211012
  Transmission Date: 20220304
  Serious: Yes (Hospitalization)
  Sender: FDA-Public Use
  Company Number: ES-CELLTRION HEALTHCARE HUNGARY KFT-2021ES007167

PATIENT

DRUGS (8)
  1. BENDAMUSTINE HYDROCHLORIDE [Suspect]
     Active Substance: BENDAMUSTINE HYDROCHLORIDE
     Indication: Nodal marginal zone B-cell lymphoma stage IV
     Dosage: 90 MILLIGRAM/SQ. METER (90 MG/M2)
     Route: 042
  2. DEXAMETHASONE [Suspect]
     Active Substance: DEXAMETHASONE
     Indication: Nodal marginal zone B-cell lymphoma stage IV
     Dosage: 4 MILLIGRAM (4 MG)
     Route: 042
  3. ONDANSETRON [Suspect]
     Active Substance: ONDANSETRON
     Indication: Nodal marginal zone B-cell lymphoma stage IV
     Dosage: 8 MILLIGRAM (8 MG)
     Route: 042
  4. TRUXIMA [Suspect]
     Active Substance: RITUXIMAB-ABBS
     Indication: Nodal marginal zone B-cell lymphoma stage IV
     Dosage: 375 MILLIGRAM/SQ. METER (375 MG/M2; SECOND CYCLE)
  5. TRUXIMA [Suspect]
     Active Substance: RITUXIMAB-ABBS
     Dosage: 375 MILLIGRAM/SQ. METER (375 MG/M2; FIRST CYCLE)
     Route: 042
     Dates: start: 202010
  6. TRUXIMA [Suspect]
     Active Substance: RITUXIMAB-ABBS
     Dosage: 375 MILLIGRAM/SQ. METER (375 MG/M2; FIRST PART OF THE THIRD CYCLE)
     Dates: start: 202012
  7. ACETAMINOPHEN [Suspect]
     Active Substance: ACETAMINOPHEN
     Indication: Nodal marginal zone B-cell lymphoma stage IV
     Dosage: 1 GRAM (1 G)
     Route: 042
  8. DEXCHLORPHENIRAMINE [Suspect]
     Active Substance: DEXCHLORPHENIRAMINE
     Indication: Nodal marginal zone B-cell lymphoma stage IV
     Dosage: 5 MILLIGRAM (5 MG)
     Route: 042

REACTIONS (1)
  - Serum sickness [Recovered/Resolved]
